FAERS Safety Report 12938478 (Version 1)
Quarter: 2016Q4

REPORT INFORMATION
  Report Type: Spontaneous
  Country: US (occurrence: US)
  Receive Date: 20161114
  Receipt Date: 20161114
  Transmission Date: 20170207
  Serious: No
  Sender: FDA-Public Use
  Company Number: US-ACADIA PHARMACEUTICALS INC.-ACA-2016-000372

PATIENT
  Age: 78 Year
  Sex: Male
  Weight: 77.98 kg

DRUGS (3)
  1. NUPLAZID [Suspect]
     Active Substance: PIMAVANSERIN TARTRATE
     Indication: PARKINSON^S DISEASE PSYCHOSIS
     Dosage: 17 MG, QD
     Route: 048
     Dates: start: 20160719, end: 201607
  2. NUPLAZID [Suspect]
     Active Substance: PIMAVANSERIN TARTRATE
     Indication: DELUSION
  3. NUPLAZID [Suspect]
     Active Substance: PIMAVANSERIN TARTRATE
     Indication: HALLUCINATION
     Dosage: 8.5 MG, QD
     Route: 048
     Dates: start: 201608, end: 20160803

REACTIONS (6)
  - Abasia [Unknown]
  - Muscle disorder [Unknown]
  - Weight bearing difficulty [Unknown]
  - Motor dysfunction [Unknown]
  - Staring [Unknown]
  - Dysarthria [Unknown]

NARRATIVE: CASE EVENT DATE: 201607
